FAERS Safety Report 4532204-1 (Version None)
Quarter: 2004Q4

REPORT INFORMATION
  Report Type: 
  Country: None (occurrence: None)
  Receive Date: 20041217
  Receipt Date: 20041206
  Transmission Date: 20050328
  Serious: Yes (Other)
  Sender: FDA-Public Use
  Company Number: 2004108085

PATIENT
  Age: 43 Year
  Sex: Female

DRUGS (2)
  1. DETROL LA [Suspect]
     Indication: ILL-DEFINED DISORDER
     Dosage: (4 MG), ORAL
     Route: 048
  2. ESTRADIOL [Concomitant]

REACTIONS (4)
  - CHEST DISCOMFORT [None]
  - EYE SWELLING [None]
  - HYPERSENSITIVITY [None]
  - THROAT TIGHTNESS [None]
